FAERS Safety Report 10736000 (Version 2)
Quarter: 2015Q1

REPORT INFORMATION
  Report Type: Report from Study
  Country: PT (occurrence: PT)
  Receive Date: 20150126
  Receipt Date: 20150129
  Transmission Date: 20150721
  Serious: Yes (Death)
  Sender: FDA-Public Use
  Company Number: PT-SA-CAMP-1003070

PATIENT
  Age: 83 Year

DRUGS (2)
  1. CAMPATH [Suspect]
     Active Substance: ALEMTUZUMAB
     Indication: MYCOSIS FUNGOIDES
     Route: 058
     Dates: start: 20140505, end: 20140530
  2. CAMPATH [Suspect]
     Active Substance: ALEMTUZUMAB
     Indication: MYCOSIS FUNGOIDES
     Dosage: 10 MG, 3X/W (TOTAL 12 WEEKS), 2ND/3RD LINE THERAPY
     Route: 058
     Dates: start: 20130909, end: 20131016

REACTIONS (2)
  - Sepsis [Fatal]
  - Off label use [Unknown]

NARRATIVE: CASE EVENT DATE: 20130909
